FAERS Safety Report 8681693 (Version 2)
Quarter: 2012Q4

REPORT INFORMATION
  Report Type: Spontaneous
  Country: GB (occurrence: None)
  Receive Date: 20120709
  Receipt Date: 20120829
  Transmission Date: 20130627
  Serious: Yes (Death)
  Sender: FDA-Public Use
  Company Number: EU-2012-10192

PATIENT
  Sex: Female
  Weight: 45 kg

DRUGS (57)
  1. SAMSCA [Suspect]
     Indication: HYPONATRAEMIA
     Dosage: 7.5 MG MILLIGRAM(S), DAILY DOSE, ORAL; 15 MG MILLIGRAM(S), DAILY DOSE, ORAL; 30 MG MILLIGRAM(S), DAI
     Route: 048
     Dates: start: 20110209, end: 20110209
  2. SAMSCA [Suspect]
     Indication: NEOPLASM
     Dosage: 7.5 MG MILLIGRAM(S), DAILY DOSE, ORAL; 15 MG MILLIGRAM(S), DAILY DOSE, ORAL; 30 MG MILLIGRAM(S), DAI
     Route: 048
     Dates: start: 20110209, end: 20110209
  3. SAMSCA [Suspect]
     Indication: INAPPROPRIATE ANTIDIURETIC HORMONE SECRETION
     Dosage: 7.5 MG MILLIGRAM(S), DAILY DOSE, ORAL; 15 MG MILLIGRAM(S), DAILY DOSE, ORAL; 30 MG MILLIGRAM(S), DAI
     Route: 048
     Dates: start: 20110209, end: 20110209
  4. SAMSCA [Suspect]
     Indication: HYPONATREMIA
     Dosage: 7.5 MG MILLIGRAM(S), DAILY DOSE, ORAL; 15 MG MILLIGRAM(S), DAILY DOSE, ORAL; 30 MG MILLIGRAM(S), DAI
     Route: 048
     Dates: start: 20110209, end: 20110209
  5. SAMSCA [Suspect]
     Indication: SIADH
     Dosage: 7.5 MG MILLIGRAM(S), DAILY DOSE, ORAL; 15 MG MILLIGRAM(S), DAILY DOSE, ORAL; 30 MG MILLIGRAM(S), DAI
     Route: 048
     Dates: start: 20110209, end: 20110209
  6. SAMSCA [Suspect]
     Indication: NEOPLASM
     Dosage: 7.5 MG MILLIGRAM(S), DAILY DOSE, ORAL; 15 MG MILLIGRAM(S), DAILY DOSE, ORAL; 30 MG MILLIGRAM(S), DAI
     Route: 048
     Dates: start: 20110209, end: 20110209
  7. SAMSCA [Suspect]
     Indication: HYPONATRAEMIA
     Dosage: 7.5 MG MILLIGRAM(S), DAILY DOSE, ORAL; 15 MG MILLIGRAM(S), DAILY DOSE, ORAL; 30 MG MILLIGRAM(S), DAI
     Route: 048
     Dates: start: 20110221, end: 20110221
  8. SAMSCA [Suspect]
     Indication: NEOPLASM
     Dosage: 7.5 MG MILLIGRAM(S), DAILY DOSE, ORAL; 15 MG MILLIGRAM(S), DAILY DOSE, ORAL; 30 MG MILLIGRAM(S), DAI
     Route: 048
     Dates: start: 20110221, end: 20110221
  9. SAMSCA [Suspect]
     Indication: INAPPROPRIATE ANTIDIURETIC HORMONE SECRETION
     Dosage: 7.5 MG MILLIGRAM(S), DAILY DOSE, ORAL; 15 MG MILLIGRAM(S), DAILY DOSE, ORAL; 30 MG MILLIGRAM(S), DAI
     Route: 048
     Dates: start: 20110221, end: 20110221
  10. SAMSCA [Suspect]
     Indication: HYPONATREMIA
     Dosage: 7.5 MG MILLIGRAM(S), DAILY DOSE, ORAL; 15 MG MILLIGRAM(S), DAILY DOSE, ORAL; 30 MG MILLIGRAM(S), DAI
     Route: 048
     Dates: start: 20110221, end: 20110221
  11. SAMSCA [Suspect]
     Indication: SIADH
     Dosage: 7.5 MG MILLIGRAM(S), DAILY DOSE, ORAL; 15 MG MILLIGRAM(S), DAILY DOSE, ORAL; 30 MG MILLIGRAM(S), DAI
     Route: 048
     Dates: start: 20110221, end: 20110221
  12. SAMSCA [Suspect]
     Indication: NEOPLASM
     Dosage: 7.5 MG MILLIGRAM(S), DAILY DOSE, ORAL; 15 MG MILLIGRAM(S), DAILY DOSE, ORAL; 30 MG MILLIGRAM(S), DAI
     Route: 048
     Dates: start: 20110221, end: 20110221
  13. SAMSCA [Suspect]
     Indication: HYPONATRAEMIA
     Dosage: 7.5 MG MILLIGRAM(S), DAILY DOSE, ORAL; 15 MG MILLIGRAM(S), DAILY DOSE, ORAL; 30 MG MILLIGRAM(S), DAI
     Route: 048
     Dates: start: 20110223, end: 20110223
  14. SAMSCA [Suspect]
     Indication: NEOPLASM
     Dosage: 7.5 MG MILLIGRAM(S), DAILY DOSE, ORAL; 15 MG MILLIGRAM(S), DAILY DOSE, ORAL; 30 MG MILLIGRAM(S), DAI
     Route: 048
     Dates: start: 20110223, end: 20110223
  15. SAMSCA [Suspect]
     Indication: INAPPROPRIATE ANTIDIURETIC HORMONE SECRETION
     Dosage: 7.5 MG MILLIGRAM(S), DAILY DOSE, ORAL; 15 MG MILLIGRAM(S), DAILY DOSE, ORAL; 30 MG MILLIGRAM(S), DAI
     Route: 048
     Dates: start: 20110223, end: 20110223
  16. SAMSCA [Suspect]
     Indication: HYPONATREMIA
     Dosage: 7.5 MG MILLIGRAM(S), DAILY DOSE, ORAL; 15 MG MILLIGRAM(S), DAILY DOSE, ORAL; 30 MG MILLIGRAM(S), DAI
     Route: 048
     Dates: start: 20110223, end: 20110223
  17. SAMSCA [Suspect]
     Indication: SIADH
     Dosage: 7.5 MG MILLIGRAM(S), DAILY DOSE, ORAL; 15 MG MILLIGRAM(S), DAILY DOSE, ORAL; 30 MG MILLIGRAM(S), DAI
     Route: 048
     Dates: start: 20110223, end: 20110223
  18. SAMSCA [Suspect]
     Indication: NEOPLASM
     Dosage: 7.5 MG MILLIGRAM(S), DAILY DOSE, ORAL; 15 MG MILLIGRAM(S), DAILY DOSE, ORAL; 30 MG MILLIGRAM(S), DAI
     Route: 048
     Dates: start: 20110223, end: 20110223
  19. SAMSCA [Suspect]
     Indication: HYPONATRAEMIA
     Dosage: 7.5 MG MILLIGRAM(S), DAILY DOSE, ORAL; 15 MG MILLIGRAM(S), DAILY DOSE, ORAL; 30 MG MILLIGRAM(S), DAI
     Route: 048
     Dates: start: 20110225, end: 20110225
  20. SAMSCA [Suspect]
     Indication: NEOPLASM
     Dosage: 7.5 MG MILLIGRAM(S), DAILY DOSE, ORAL; 15 MG MILLIGRAM(S), DAILY DOSE, ORAL; 30 MG MILLIGRAM(S), DAI
     Route: 048
     Dates: start: 20110225, end: 20110225
  21. SAMSCA [Suspect]
     Indication: INAPPROPRIATE ANTIDIURETIC HORMONE SECRETION
     Dosage: 7.5 MG MILLIGRAM(S), DAILY DOSE, ORAL; 15 MG MILLIGRAM(S), DAILY DOSE, ORAL; 30 MG MILLIGRAM(S), DAI
     Route: 048
     Dates: start: 20110225, end: 20110225
  22. SAMSCA [Suspect]
     Indication: HYPONATREMIA
     Dosage: 7.5 MG MILLIGRAM(S), DAILY DOSE, ORAL; 15 MG MILLIGRAM(S), DAILY DOSE, ORAL; 30 MG MILLIGRAM(S), DAI
     Route: 048
     Dates: start: 20110225, end: 20110225
  23. SAMSCA [Suspect]
     Indication: SIADH
     Dosage: 7.5 MG MILLIGRAM(S), DAILY DOSE, ORAL; 15 MG MILLIGRAM(S), DAILY DOSE, ORAL; 30 MG MILLIGRAM(S), DAI
     Route: 048
     Dates: start: 20110225, end: 20110225
  24. SAMSCA [Suspect]
     Indication: NEOPLASM
     Dosage: 7.5 MG MILLIGRAM(S), DAILY DOSE, ORAL; 15 MG MILLIGRAM(S), DAILY DOSE, ORAL; 30 MG MILLIGRAM(S), DAI
     Route: 048
     Dates: start: 20110225, end: 20110225
  25. SAMSCA [Suspect]
     Indication: HYPONATRAEMIA
     Dosage: 7.5 MG MILLIGRAM(S), DAILY DOSE, ORAL; 15 MG MILLIGRAM(S), DAILY DOSE, ORAL; 30 MG MILLIGRAM(S), DAI
     Route: 048
     Dates: start: 20110227, end: 20110227
  26. SAMSCA [Suspect]
     Indication: NEOPLASM
     Dosage: 7.5 MG MILLIGRAM(S), DAILY DOSE, ORAL; 15 MG MILLIGRAM(S), DAILY DOSE, ORAL; 30 MG MILLIGRAM(S), DAI
     Route: 048
     Dates: start: 20110227, end: 20110227
  27. SAMSCA [Suspect]
     Indication: INAPPROPRIATE ANTIDIURETIC HORMONE SECRETION
     Dosage: 7.5 MG MILLIGRAM(S), DAILY DOSE, ORAL; 15 MG MILLIGRAM(S), DAILY DOSE, ORAL; 30 MG MILLIGRAM(S), DAI
     Route: 048
     Dates: start: 20110227, end: 20110227
  28. SAMSCA [Suspect]
     Indication: HYPONATREMIA
     Dosage: 7.5 MG MILLIGRAM(S), DAILY DOSE, ORAL; 15 MG MILLIGRAM(S), DAILY DOSE, ORAL; 30 MG MILLIGRAM(S), DAI
     Route: 048
     Dates: start: 20110227, end: 20110227
  29. SAMSCA [Suspect]
     Indication: SIADH
     Dosage: 7.5 MG MILLIGRAM(S), DAILY DOSE, ORAL; 15 MG MILLIGRAM(S), DAILY DOSE, ORAL; 30 MG MILLIGRAM(S), DAI
     Route: 048
     Dates: start: 20110227, end: 20110227
  30. SAMSCA [Suspect]
     Indication: NEOPLASM
     Dosage: 7.5 MG MILLIGRAM(S), DAILY DOSE, ORAL; 15 MG MILLIGRAM(S), DAILY DOSE, ORAL; 30 MG MILLIGRAM(S), DAI
     Route: 048
     Dates: start: 20110227, end: 20110227
  31. SAMSCA [Suspect]
     Indication: HYPONATRAEMIA
     Dosage: 7.5 MG MILLIGRAM(S), DAILY DOSE, ORAL; 15 MG MILLIGRAM(S), DAILY DOSE, ORAL; 30 MG MILLIGRAM(S), DAI
     Route: 048
     Dates: start: 20110301, end: 20110301
  32. SAMSCA [Suspect]
     Indication: NEOPLASM
     Dosage: 7.5 MG MILLIGRAM(S), DAILY DOSE, ORAL; 15 MG MILLIGRAM(S), DAILY DOSE, ORAL; 30 MG MILLIGRAM(S), DAI
     Route: 048
     Dates: start: 20110301, end: 20110301
  33. SAMSCA [Suspect]
     Indication: INAPPROPRIATE ANTIDIURETIC HORMONE SECRETION
     Dosage: 7.5 MG MILLIGRAM(S), DAILY DOSE, ORAL; 15 MG MILLIGRAM(S), DAILY DOSE, ORAL; 30 MG MILLIGRAM(S), DAI
     Route: 048
     Dates: start: 20110301, end: 20110301
  34. SAMSCA [Suspect]
     Indication: HYPONATREMIA
     Dosage: 7.5 MG MILLIGRAM(S), DAILY DOSE, ORAL; 15 MG MILLIGRAM(S), DAILY DOSE, ORAL; 30 MG MILLIGRAM(S), DAI
     Route: 048
     Dates: start: 20110301, end: 20110301
  35. SAMSCA [Suspect]
     Indication: SIADH
     Dosage: 7.5 MG MILLIGRAM(S), DAILY DOSE, ORAL; 15 MG MILLIGRAM(S), DAILY DOSE, ORAL; 30 MG MILLIGRAM(S), DAI
     Route: 048
     Dates: start: 20110301, end: 20110301
  36. SAMSCA [Suspect]
     Indication: NEOPLASM
     Dosage: 7.5 MG MILLIGRAM(S), DAILY DOSE, ORAL; 15 MG MILLIGRAM(S), DAILY DOSE, ORAL; 30 MG MILLIGRAM(S), DAI
     Route: 048
     Dates: start: 20110301, end: 20110301
  37. SAMSCA [Suspect]
     Indication: HYPONATRAEMIA
     Dosage: 7.5 MG MILLIGRAM(S), DAILY DOSE, ORAL; 15 MG MILLIGRAM(S), DAILY DOSE, ORAL; 30 MG MILLIGRAM(S), DAI
     Route: 048
     Dates: start: 20110302, end: 20110302
  38. SAMSCA [Suspect]
     Indication: NEOPLASM
     Dosage: 7.5 MG MILLIGRAM(S), DAILY DOSE, ORAL; 15 MG MILLIGRAM(S), DAILY DOSE, ORAL; 30 MG MILLIGRAM(S), DAI
     Route: 048
     Dates: start: 20110302, end: 20110302
  39. SAMSCA [Suspect]
     Indication: INAPPROPRIATE ANTIDIURETIC HORMONE SECRETION
     Dosage: 7.5 MG MILLIGRAM(S), DAILY DOSE, ORAL; 15 MG MILLIGRAM(S), DAILY DOSE, ORAL; 30 MG MILLIGRAM(S), DAI
     Route: 048
     Dates: start: 20110302, end: 20110302
  40. SAMSCA [Suspect]
     Indication: HYPONATREMIA
     Dosage: 7.5 MG MILLIGRAM(S), DAILY DOSE, ORAL; 15 MG MILLIGRAM(S), DAILY DOSE, ORAL; 30 MG MILLIGRAM(S), DAI
     Route: 048
     Dates: start: 20110302, end: 20110302
  41. SAMSCA [Suspect]
     Indication: SIADH
     Dosage: 7.5 MG MILLIGRAM(S), DAILY DOSE, ORAL; 15 MG MILLIGRAM(S), DAILY DOSE, ORAL; 30 MG MILLIGRAM(S), DAI
     Route: 048
     Dates: start: 20110302, end: 20110302
  42. SAMSCA [Suspect]
     Indication: NEOPLASM
     Dosage: 7.5 MG MILLIGRAM(S), DAILY DOSE, ORAL; 15 MG MILLIGRAM(S), DAILY DOSE, ORAL; 30 MG MILLIGRAM(S), DAI
     Route: 048
     Dates: start: 20110302, end: 20110302
  43. SAMSCA [Suspect]
     Indication: HYPONATRAEMIA
     Dosage: 7.5 MG MILLIGRAM(S), DAILY DOSE, ORAL; 15 MG MILLIGRAM(S), DAILY DOSE, ORAL; 30 MG MILLIGRAM(S), DAI
     Route: 048
     Dates: start: 20110314, end: 20110314
  44. SAMSCA [Suspect]
     Indication: NEOPLASM
     Dosage: 7.5 MG MILLIGRAM(S), DAILY DOSE, ORAL; 15 MG MILLIGRAM(S), DAILY DOSE, ORAL; 30 MG MILLIGRAM(S), DAI
     Route: 048
     Dates: start: 20110314, end: 20110314
  45. SAMSCA [Suspect]
     Indication: INAPPROPRIATE ANTIDIURETIC HORMONE SECRETION
     Dosage: 7.5 MG MILLIGRAM(S), DAILY DOSE, ORAL; 15 MG MILLIGRAM(S), DAILY DOSE, ORAL; 30 MG MILLIGRAM(S), DAI
     Route: 048
     Dates: start: 20110314, end: 20110314
  46. SAMSCA [Suspect]
     Indication: HYPONATREMIA
     Dosage: 7.5 MG MILLIGRAM(S), DAILY DOSE, ORAL; 15 MG MILLIGRAM(S), DAILY DOSE, ORAL; 30 MG MILLIGRAM(S), DAI
     Route: 048
     Dates: start: 20110314, end: 20110314
  47. SAMSCA [Suspect]
     Indication: SIADH
     Dosage: 7.5 MG MILLIGRAM(S), DAILY DOSE, ORAL; 15 MG MILLIGRAM(S), DAILY DOSE, ORAL; 30 MG MILLIGRAM(S), DAI
     Route: 048
     Dates: start: 20110314, end: 20110314
  48. SAMSCA [Suspect]
     Indication: NEOPLASM
     Dosage: 7.5 MG MILLIGRAM(S), DAILY DOSE, ORAL; 15 MG MILLIGRAM(S), DAILY DOSE, ORAL; 30 MG MILLIGRAM(S), DAI
     Route: 048
     Dates: start: 20110314, end: 20110314
  49. CITALOPRAM [Concomitant]
  50. TEMAZEPAM [Concomitant]
  51. RANITIDINE [Concomitant]
  52. QUININE SULFATE [Concomitant]
  53. PARACETAMOL [Concomitant]
  54. LACTULOSE [Concomitant]
  55. ALBUTEROL SULFATE [Concomitant]
  56. SERETIDE (FLUTICASONE PROPIONATE, SALMETEROL XINAFOATE) [Concomitant]
  57. SPIRIVA [Concomitant]

REACTIONS (3)
  - Restlessness [None]
  - Discomfort [None]
  - Wrong technique in drug usage process [None]
